FAERS Safety Report 23223240 (Version 1)
Quarter: 2023Q4

REPORT INFORMATION
  Report Type: Report from Study
  Country: CN (occurrence: CN)
  Receive Date: 20231123
  Receipt Date: 20231123
  Transmission Date: 20240109
  Serious: Yes (Life-Threatening, Other)
  Sender: FDA-Public Use
  Company Number: CN-ELI_LILLY_AND_COMPANY-CN202311013022

PATIENT
  Age: 25 Year
  Sex: Female

DRUGS (4)
  1. CYRAMZA [Suspect]
     Active Substance: RAMUCIRUMAB
     Indication: Gastric cancer
     Dosage: 500 MG, CYCLICAL (EVERY 3 WEEKS)
     Route: 041
     Dates: start: 20231020
  2. PACLITAXEL [Concomitant]
     Active Substance: PACLITAXEL
     Indication: Gastric cancer
     Dosage: 100 MG, CYCLICAL
     Route: 041
     Dates: start: 20231020
  3. PACLITAXEL [Concomitant]
     Active Substance: PACLITAXEL
     Dosage: 100 MG, CYCLICAL
     Route: 033
     Dates: start: 20231020
  4. CISPLATIN [Concomitant]
     Active Substance: CISPLATIN
     Indication: Gastric cancer
     Dosage: 20 MG, CYCLICAL
     Route: 033
     Dates: start: 20231020

REACTIONS (3)
  - Myelosuppression [Recovering/Resolving]
  - Infection [Recovering/Resolving]
  - Hypoxia [Recovering/Resolving]

NARRATIVE: CASE EVENT DATE: 20231025
